FAERS Safety Report 6672756-9 (Version None)
Quarter: 2010Q2

REPORT INFORMATION
  Report Type: 
  Country: None (occurrence: None)
  Receive Date: 20100408
  Receipt Date: 20100329
  Transmission Date: 20101027
  Serious: Yes (Hospitalization)
  Sender: FDA-Public Use
  Company Number: JP-PFIZER INC-2010040990

PATIENT
  Age: 15 Year
  Sex: Male

DRUGS (4)
  1. DALACIN [Suspect]
     Indication: SINUSITIS
     Dosage: UNK
     Route: 042
     Dates: start: 20100329, end: 20100329
  2. TALION [Concomitant]
     Dosage: 10 MG/DAY
     Route: 048
  3. KLARICID [Concomitant]
     Dosage: 400 MG/DAY
     Route: 048
  4. CALONAL [Concomitant]
     Dosage: 400 MG/6 TIMES AS NEEDED
     Route: 048

REACTIONS (1)
  - SHOCK [None]
